FAERS Safety Report 9571517 (Version 2)
Quarter: 2013Q4

REPORT INFORMATION
  Report Type: Spontaneous
  Country: US (occurrence: US)
  Receive Date: 20131001
  Receipt Date: 20131030
  Transmission Date: 20140711
  Serious: Yes (Other)
  Sender: FDA-Public Use
  Company Number: US-PFIZER INC-2013275156

PATIENT
  Age: 55 Year
  Sex: Female

DRUGS (5)
  1. BOSULIF [Suspect]
     Indication: CHRONIC MYELOID LEUKAEMIA
     Dosage: 500 MG, DAILY
     Route: 048
     Dates: start: 20130311, end: 20130916
  2. CENTRUM SILVER [Concomitant]
     Dosage: 1 DF, DAILY
     Route: 048
     Dates: start: 20130612
  3. DIOVAN HCT [Concomitant]
     Dosage: 1 DF, DAILY
     Route: 048
     Dates: start: 20130916
  4. ICLUSIG [Concomitant]
     Dosage: 45 MG, DAILY
     Route: 048
     Dates: start: 20130916
  5. TYLENOL EXTRA-STRENGTH [Concomitant]
     Dosage: 500 MG, (TAKE 1 TABLET EVERY 6 HOURS AS NEEDED)
     Route: 048
     Dates: start: 20131009

REACTIONS (12)
  - Pericardial effusion [Recovering/Resolving]
  - Cardiac tamponade [Unknown]
  - Thoracic cavity drainage [Recovered/Resolved]
  - Diarrhoea [Not Recovered/Not Resolved]
  - Fatigue [Not Recovered/Not Resolved]
  - Headache [Recovered/Resolved]
  - Abdominal pain [Not Recovered/Not Resolved]
  - Chest pain [Not Recovered/Not Resolved]
  - Hypertension [Not Recovered/Not Resolved]
  - Back pain [Not Recovered/Not Resolved]
  - Dyspnoea exertional [Not Recovered/Not Resolved]
  - Anaemia [Not Recovered/Not Resolved]
